FAERS Safety Report 19112259 (Version 2)
Quarter: 2021Q2

REPORT INFORMATION
  Report Type: Report from Study
  Country: None (occurrence: US)
  Receive Date: 20210409
  Receipt Date: 20210525
  Transmission Date: 20210717
  Serious: Yes (Hospitalization)
  Sender: FDA-Public Use
  Company Number: US-ABBVIE-21K-163-3780809-00

PATIENT
  Age: 73 Year
  Sex: Male
  Weight: 61.29 kg

DRUGS (2)
  1. HUMIRA [Suspect]
     Active Substance: ADALIMUMAB
     Indication: ANKYLOSING SPONDYLITIS
     Route: 058
     Dates: start: 2011
  2. HYDROCODONE [Concomitant]
     Active Substance: HYDROCODONE
     Indication: PAIN

REACTIONS (9)
  - Procedural pain [Recovered/Resolved]
  - Joint swelling [Recovering/Resolving]
  - Lung disorder [Not Recovered/Not Resolved]
  - Complication associated with device [Recovered/Resolved]
  - Osteoporosis [Unknown]
  - Pneumonia [Recovered/Resolved]
  - Mobility decreased [Recovering/Resolving]
  - Fall [Recovered/Resolved]
  - Balance disorder [Recovered/Resolved]

NARRATIVE: CASE EVENT DATE: 2011
